FAERS Safety Report 6716844-7 (Version None)
Quarter: 2010Q2

REPORT INFORMATION
  Report Type: 
  Country: None (occurrence: None)
  Receive Date: 20100510
  Receipt Date: 20100428
  Transmission Date: 20101027
  Serious: Yes (Other)
  Sender: FDA-Public Use
  Company Number: US-RANBAXY-2010US-33453

PATIENT

DRUGS (7)
  1. TOPIRAMATE [Suspect]
     Indication: CONVULSION
     Dosage: 50 MG, BID
  2. FLUOXETINE [Suspect]
     Indication: DRUG USE FOR UNKNOWN INDICATION
     Dosage: 20 MG PER DAY
     Route: 065
  3. CLONAZEPAM [Suspect]
     Indication: DRUG USE FOR UNKNOWN INDICATION
     Route: 065
  4. BUPROPION HCL [Suspect]
     Indication: DRUG USE FOR UNKNOWN INDICATION
     Route: 065
  5. GLATIRAMER ACETATE [Suspect]
     Indication: DRUG USE FOR UNKNOWN INDICATION
     Route: 065
  6. AMANTADINE HCL [Suspect]
     Indication: TREMOR
     Dosage: 100 MG/DAY
     Route: 065
  7. AMANTADINE HCL [Suspect]
     Indication: FATIGUE

REACTIONS (1)
  - CORNEAL OEDEMA [None]
